FAERS Safety Report 9260613 (Version 9)
Quarter: 2015Q4

REPORT INFORMATION
  Report Type: Spontaneous
  Country: US (occurrence: US)
  Receive Date: 20130429
  Receipt Date: 20151016
  Transmission Date: 20160305
  Serious: Yes (Other)
  Sender: FDA-Public Use
  Company Number: US-PFIZER INC-2013131907

PATIENT
  Sex: Male
  Weight: 122 kg

DRUGS (4)
  1. LYRICA [Suspect]
     Active Substance: PREGABALIN
     Indication: NEUROPATHY PERIPHERAL
     Dosage: UNK, AS NEEDED
  2. LYRICA [Suspect]
     Active Substance: PREGABALIN
     Indication: DIABETIC NEUROPATHY
  3. PLAVIX [Concomitant]
     Active Substance: CLOPIDOGREL BISULFATE
     Dosage: UNK
  4. VIAGRA [Suspect]
     Active Substance: SILDENAFIL CITRATE
     Indication: SEXUAL DYSFUNCTION
     Dosage: 100 MG, AS NEEDED
     Route: 048

REACTIONS (14)
  - Blood glucose decreased [Unknown]
  - Fatigue [Unknown]
  - Back pain [Unknown]
  - Muscle spasms [Unknown]
  - Gait disturbance [Recovering/Resolving]
  - Movement disorder [Unknown]
  - Dementia [Not Recovered/Not Resolved]
  - Burning sensation [Unknown]
  - Sleep disorder [Unknown]
  - Malaise [Unknown]
  - Diabetic coma [Unknown]
  - Pain [Unknown]
  - Somnolence [Unknown]
  - Weight decreased [Unknown]

NARRATIVE: CASE EVENT DATE: 201509
